FAERS Safety Report 24827600 (Version 3)
Quarter: 2025Q1

REPORT INFORMATION
  Report Type: Report from Study
  Country: CL (occurrence: CL)
  Receive Date: 20250109
  Receipt Date: 20250130
  Transmission Date: 20250409
  Serious: Yes (Hospitalization)
  Sender: SANDOZ
  Company Number: CL-SANDOZ-SDZ2025CL001118

PATIENT
  Age: 10 Year
  Sex: Male
  Weight: 26 kg

DRUGS (1)
  1. OMNITROPE [Suspect]
     Active Substance: SOMATROPIN
     Indication: Product used for unknown indication
     Dosage: 1.0 MG, QD (1.0 MG N/A DOSE EVERY N/A N/A)
     Route: 058
     Dates: start: 20240627

REACTIONS (5)
  - Illness [Unknown]
  - Viral parotitis [Unknown]
  - Nasopharyngitis [Unknown]
  - Wrong technique in device usage process [Unknown]
  - Incorrect dose administered [Unknown]

NARRATIVE: CASE EVENT DATE: 20250101
